FAERS Safety Report 11015231 (Version 2)
Quarter: 2015Q2

REPORT INFORMATION
  Report Type: Spontaneous
  Country: US (occurrence: US)
  Receive Date: 20150412
  Receipt Date: 20150525
  Transmission Date: 20150821
  Serious: No
  Sender: FDA-Public Use
  Company Number: US-JNJFOC-20140811063

PATIENT
  Age: 62 Year
  Sex: Female
  Weight: 111.59 kg

DRUGS (8)
  1. PRILOSEC [Concomitant]
     Active Substance: OMEPRAZOLE MAGNESIUM
     Indication: GASTROOESOPHAGEAL REFLUX DISEASE
     Route: 048
     Dates: start: 2013
  2. SIMPONI [Suspect]
     Active Substance: GOLIMUMAB
     Indication: RHEUMATOID ARTHRITIS
     Route: 058
     Dates: start: 20140707
  3. PRILOSEC [Concomitant]
     Active Substance: OMEPRAZOLE MAGNESIUM
     Indication: DYSPEPSIA
     Route: 048
     Dates: start: 2013
  4. METHOTREXATE [Concomitant]
     Active Substance: METHOTREXATE
     Dosage: 15MG/TABLET/2.5MG/WEEKLY
     Route: 048
     Dates: start: 2008
  5. SIMPONI [Suspect]
     Active Substance: GOLIMUMAB
     Indication: ANKYLOSING SPONDYLITIS
     Route: 058
     Dates: start: 20140707
  6. MELOXICAM. [Concomitant]
     Active Substance: MELOXICAM
     Indication: JOINT SWELLING
     Route: 048
     Dates: start: 2008
  7. SIMPONI [Suspect]
     Active Substance: GOLIMUMAB
     Indication: PSORIATIC ARTHROPATHY
     Route: 058
     Dates: start: 20140707
  8. NORCO [Concomitant]
     Active Substance: ACETAMINOPHEN\HYDROCODONE BITARTRATE
     Indication: PAIN
     Dosage: DOSE: 325/550 MG
     Route: 048
     Dates: start: 2008

REACTIONS (3)
  - Device malfunction [Unknown]
  - Pain [Unknown]
  - Drug dose omission [Unknown]

NARRATIVE: CASE EVENT DATE: 2014
